FAERS Safety Report 10136246 (Version 1)
Quarter: 2014Q2

REPORT INFORMATION
  Report Type: Spontaneous
  Country: US (occurrence: US)
  Receive Date: 20140429
  Receipt Date: 20140429
  Transmission Date: 20141212
  Serious: Yes (Other)
  Sender: FDA-Public Use
  Company Number: US-ROCHE-1391788

PATIENT
  Age: 22 Year
  Sex: Female

DRUGS (3)
  1. RITUXAN [Suspect]
     Indication: GRAFT VERSUS HOST DISEASE
     Route: 065
     Dates: start: 201302
  2. RITUXAN [Suspect]
     Indication: HODGKIN^S DISEASE
     Route: 065
     Dates: end: 201005
  3. GEMCITABINE [Concomitant]
     Indication: HODGKIN^S DISEASE

REACTIONS (4)
  - Graft versus host disease [Unknown]
  - Drug ineffective [Unknown]
  - Weight decreased [Unknown]
  - Gastrointestinal disorder [Unknown]
